FAERS Safety Report 5420533-9 (Version None)
Quarter: 2007Q3

REPORT INFORMATION
  Report Type: 
  Country: None (occurrence: None)
  Receive Date: 20070821
  Receipt Date: 20070222
  Transmission Date: 20080115
  Serious: No
  Sender: FDA-Public Use
  Company Number: US-KINGPHARMUSA00001-K200700215

PATIENT
  Sex: Female

DRUGS (1)
  1. CYTOMEL [Suspect]
     Dosage: 5 MCG, BID
     Route: 048

REACTIONS (3)
  - CONSTIPATION [None]
  - DRY SKIN [None]
  - WEIGHT INCREASED [None]
